FAERS Safety Report 5170600-2 (Version None)
Quarter: 2006Q4

REPORT INFORMATION
  Report Type: 
  Country: None (occurrence: None)
  Receive Date: 20061205
  Receipt Date: 20061124
  Transmission Date: 20070319
  Serious: Yes (Other)
  Sender: FDA-Public Use
  Company Number: 2006145579

PATIENT
  Sex: Male

DRUGS (9)
  1. SERTRALINE [Suspect]
  2. TRAMADOL HCL [Concomitant]
  3. METHOTREXATE [Concomitant]
  4. HYDROXYCHLOROQUINE SULFATE [Concomitant]
  5. SULFASALAZINE [Concomitant]
  6. LEVOTHYROXINE SODIUM [Concomitant]
  7. FOLIC ACID [Concomitant]
  8. MELOXICAM [Concomitant]
  9. ENBREL [Concomitant]

REACTIONS (3)
  - NEURALGIA [None]
  - OBESITY [None]
  - RHEUMATOID ARTHRITIS [None]
